FAERS Safety Report 6960551-2 (Version None)
Quarter: 2010Q3

REPORT INFORMATION
  Report Type: 
  Country: None (occurrence: None)
  Receive Date: 20100826
  Receipt Date: 20100818
  Transmission Date: 20110219
  Serious: Yes (Other)
  Sender: FDA-Public Use
  Company Number: 2010SP042645

PATIENT
  Age: 43 Year
  Sex: Male
  Weight: 63 kg

DRUGS (1)
  1. DIPROSPAN (BETAMETHASONE SODIUM PHOSPHATE / DIPROPIONATE) (BETAMETHASO [Suspect]
     Indication: KELOID SCAR
     Dosage: 1 ML, ONCE
     Dates: start: 20100602, end: 20100602

REACTIONS (2)
  - ANAPHYLACTOID REACTION [None]
  - INJECTION SITE ERYTHEMA [None]
